FAERS Safety Report 4289104-4 (Version None)
Quarter: 2004Q1

REPORT INFORMATION
  Report Type: 
  Country: None (occurrence: None)
  Receive Date: 20040126
  Receipt Date: 20031031
  Transmission Date: 20041129
  Serious: No
  Sender: FDA-Public Use
  Company Number: USA030433325

PATIENT
  Age: 71 Year
  Sex: Female
  Weight: 45 kg

DRUGS (19)
  1. FORTEO [Suspect]
     Indication: OSTEOPOROSIS
     Dosage: 20 UG/DAY
     Dates: start: 20030329
  2. ALOES [Concomitant]
  3. AMINO ACIDS NOS [Concomitant]
  4. ASPIRIN [Concomitant]
  5. VITAMIN B COMPLEX CAP [Concomitant]
  6. VITAMIN B-12 [Concomitant]
  7. B50 (CHLOROPHYLLINE SODIUM COPPER COMPLEX) [Concomitant]
  8. CALCIUM WITH VITAMIN D [Concomitant]
  9. COD-LIVER OIL [Concomitant]
  10. LIPONIC ACID [Concomitant]
  11. MULTI-VITAMIN [Concomitant]
  12. POLLEN [Concomitant]
  13. VITAMIN E [Concomitant]
  14. ZINC/COPPER [Concomitant]
  15. NEXIUM [Concomitant]
  16. HYDROCODONE [Concomitant]
  17. ACIPHEX [Concomitant]
  18. CIPRO [Concomitant]
  19. NEURONTIN [Concomitant]

REACTIONS (6)
  - ASTHENIA [None]
  - BLOOD ALKALINE PHOSPHATASE [None]
  - BLOOD CALCIUM INCREASED [None]
  - GAMMA-GLUTAMYLTRANSFERASE INCREASED [None]
  - INJECTION SITE REACTION [None]
  - NAUSEA [None]
